FAERS Safety Report 22114784 (Version 2)
Quarter: 2023Q1

REPORT INFORMATION
  Report Type: Report from Study
  Country: CN (occurrence: CN)
  Receive Date: 20230320
  Receipt Date: 20230329
  Transmission Date: 20230418
  Serious: Yes (Hospitalization)
  Sender: FDA-Public Use
  Company Number: CN-002147023-NVSC2023CN062334

PATIENT
  Age: 66 Year
  Sex: Female
  Weight: 65 kg

DRUGS (29)
  1. TYKERB [Suspect]
     Active Substance: LAPATINIB DITOSYLATE
     Indication: Breast cancer metastatic
     Dosage: 1250 MG, QD (FORMULATION TABLET)
     Route: 065
     Dates: start: 20220323, end: 20220412
  2. TYKERB [Suspect]
     Active Substance: LAPATINIB DITOSYLATE
     Dosage: 1250 MG, QD
     Route: 065
     Dates: start: 20220413, end: 20220506
  3. TYKERB [Suspect]
     Active Substance: LAPATINIB DITOSYLATE
     Dosage: 1250 MG, QD
     Route: 065
     Dates: start: 20220507, end: 20220524
  4. TYKERB [Suspect]
     Active Substance: LAPATINIB DITOSYLATE
     Dosage: 1250 MG, QD
     Route: 065
     Dates: start: 20220525, end: 20220614
  5. TYKERB [Suspect]
     Active Substance: LAPATINIB DITOSYLATE
     Dosage: 1250 MG, QD
     Route: 065
     Dates: start: 20220615, end: 20220705
  6. TYKERB [Suspect]
     Active Substance: LAPATINIB DITOSYLATE
     Dosage: 1250 MG, QD
     Route: 065
     Dates: start: 20220706, end: 20220726
  7. TYKERB [Suspect]
     Active Substance: LAPATINIB DITOSYLATE
     Dosage: 1250 MG, QD
     Route: 065
     Dates: start: 20220727, end: 20220816
  8. TYKERB [Suspect]
     Active Substance: LAPATINIB DITOSYLATE
     Dosage: 1250 MG, QD
     Route: 065
     Dates: start: 20220817, end: 20220907
  9. TYKERB [Suspect]
     Active Substance: LAPATINIB DITOSYLATE
     Dosage: 1250 MG, QD
     Route: 065
     Dates: start: 20220908, end: 20220927
  10. TYKERB [Suspect]
     Active Substance: LAPATINIB DITOSYLATE
     Dosage: 1250 MG
     Route: 065
     Dates: start: 20220928, end: 20221018
  11. TYKERB [Suspect]
     Active Substance: LAPATINIB DITOSYLATE
     Dosage: 1250 MG, QD
     Route: 065
     Dates: start: 20221019, end: 20221108
  12. TYKERB [Suspect]
     Active Substance: LAPATINIB DITOSYLATE
     Dosage: 1250 MG, QD (STOP DATE 29 NOV 2022)
     Route: 065
     Dates: start: 20221109
  13. CAPECITABINE [Suspect]
     Active Substance: CAPECITABINE
     Indication: Breast cancer metastatic
     Dosage: 1800 MG, BID
     Route: 065
     Dates: start: 20220324, end: 20220405
  14. CAPECITABINE [Suspect]
     Active Substance: CAPECITABINE
     Dosage: 1800 MG, QD
     Route: 065
     Dates: start: 20220406, end: 20220406
  15. CAPECITABINE [Suspect]
     Active Substance: CAPECITABINE
     Dosage: 1800 MG, QD
     Route: 065
     Dates: start: 20220323, end: 20220323
  16. CAPECITABINE [Suspect]
     Active Substance: CAPECITABINE
     Dosage: 1800 MG, BID
     Route: 065
     Dates: start: 20220413, end: 20220426
  17. CAPECITABINE [Suspect]
     Active Substance: CAPECITABINE
     Dosage: 1800 MG, BID
     Route: 065
     Dates: start: 20220507, end: 20220520
  18. CAPECITABINE [Suspect]
     Active Substance: CAPECITABINE
     Dosage: 1800 MG, BID
     Route: 065
     Dates: start: 20220525, end: 20220607
  19. CAPECITABINE [Suspect]
     Active Substance: CAPECITABINE
     Dosage: 1800 MG, BID
     Route: 065
     Dates: start: 20220615, end: 20220628
  20. CAPECITABINE [Suspect]
     Active Substance: CAPECITABINE
     Dosage: 1800 MG, BID
     Route: 065
     Dates: start: 20220706, end: 20220719
  21. CAPECITABINE [Suspect]
     Active Substance: CAPECITABINE
     Dosage: 1750 MG, QD
     Route: 065
     Dates: start: 20220727, end: 20220727
  22. CAPECITABINE [Suspect]
     Active Substance: CAPECITABINE
     Dosage: 1750 MG, BID
     Route: 065
     Dates: start: 20220728, end: 20220809
  23. CAPECITABINE [Suspect]
     Active Substance: CAPECITABINE
     Dosage: 1750 MG, QD
     Route: 065
     Dates: start: 20220810, end: 20220810
  24. CAPECITABINE [Suspect]
     Active Substance: CAPECITABINE
     Dosage: 1750 MG, BID
     Route: 065
     Dates: start: 20220817, end: 20220830
  25. CAPECITABINE [Suspect]
     Active Substance: CAPECITABINE
     Dosage: 1750 MG, BID
     Route: 065
     Dates: start: 20220908, end: 20220921
  26. CAPECITABINE [Suspect]
     Active Substance: CAPECITABINE
     Dosage: 1750 MG, BID
     Route: 065
     Dates: start: 20220928, end: 20221011
  27. CAPECITABINE [Suspect]
     Active Substance: CAPECITABINE
     Dosage: 1750 MG, BID
     Route: 065
     Dates: start: 20221019, end: 20221101
  28. CAPECITABINE [Suspect]
     Active Substance: CAPECITABINE
     Dosage: 1750 MG, BID
     Route: 065
     Dates: start: 20221109, end: 20221122
  29. AMLODIPINE BESYLATE [Concomitant]
     Active Substance: AMLODIPINE BESYLATE
     Indication: Product used for unknown indication
     Dosage: 5 MG (1 / DAY)
     Route: 048
     Dates: start: 20230315

REACTIONS (12)
  - Hypokalaemia [Recovered/Resolved]
  - Platelet count decreased [Not Recovered/Not Resolved]
  - Conduction disorder [Not Recovered/Not Resolved]
  - White blood cell count decreased [Not Recovered/Not Resolved]
  - Neutrophil count decreased [Recovered/Resolved]
  - Hypertriglyceridaemia [Recovered/Resolved]
  - Asthenia [Recovered/Resolved]
  - Weight decreased [Unknown]
  - Diarrhoea [Recovered/Resolved]
  - Hypertension [Recovering/Resolving]
  - Blood alkaline phosphatase increased [Unknown]
  - Blood triglycerides abnormal [Unknown]

NARRATIVE: CASE EVENT DATE: 20220618
